FAERS Safety Report 11292200 (Version 4)
Quarter: 2016Q1

REPORT INFORMATION
  Report Type: Spontaneous
  Country: JP (occurrence: JP)
  Receive Date: 20150722
  Receipt Date: 20160122
  Transmission Date: 20160525
  Serious: Yes (Death, Other)
  Sender: FDA-Public Use
  Company Number: JP-ASTELLAS-2015JP009817

PATIENT
  Age: 66 Year
  Sex: Female
  Weight: 41 kg

DRUGS (19)
  1. NEUTROGIN [Concomitant]
     Active Substance: LENOGRASTIM
     Indication: FEBRILE NEUTROPENIA
     Route: 058
     Dates: start: 20070924, end: 20071008
  2. OMEGACIN [Concomitant]
     Active Substance: BIAPENEM
     Indication: FEBRILE NEUTROPENIA
     Dosage: 0.3, THRICE DAILY
     Route: 042
     Dates: start: 20070917, end: 20070927
  3. FUNGUARD [Suspect]
     Active Substance: MICAFUNGIN SODIUM
     Indication: FEBRILE NEUTROPENIA
     Route: 042
     Dates: start: 20070925, end: 20070930
  4. VANCOMYCIN [Concomitant]
     Active Substance: VANCOMYCIN
     Indication: FEBRILE NEUTROPENIA
     Route: 042
     Dates: start: 20070924, end: 20071008
  5. DECADRON [Concomitant]
     Active Substance: DEXAMETHASONE
     Indication: PRODUCT USED FOR UNKNOWN INDICATION
     Route: 042
     Dates: start: 20070924, end: 20070925
  6. MIRACLID [Concomitant]
     Active Substance: ULINASTATIN
     Indication: PRODUCT USED FOR UNKNOWN INDICATION
     Dosage: 100000, TWICE DAILY
     Route: 042
     Dates: start: 20070927
  7. FOY [Concomitant]
     Active Substance: GABEXATE MESYLATE
     Indication: DISSEMINATED INTRAVASCULAR COAGULATION
     Route: 042
     Dates: start: 20070907, end: 20071008
  8. VEEN D [Concomitant]
     Active Substance: CALCIUM CHLORIDE\DEXTROSE\POTASSIUM CHLORIDE\SODIUM ACETATE\SODIUM CHLORIDE
     Indication: DECREASED APPETITE
     Route: 042
     Dates: start: 20070927, end: 20070928
  9. GLYCEOL                            /00744501/ [Concomitant]
     Active Substance: GLYCERIN
     Indication: SEIZURE
     Route: 042
     Dates: start: 20070929
  10. MAXIPIME [Concomitant]
     Active Substance: CEFEPIME HYDROCHLORIDE
     Indication: FEBRILE NEUTROPENIA
     Route: 042
     Dates: start: 20070927
  11. GASTER [Concomitant]
     Active Substance: FAMOTIDINE
     Indication: FASTING
     Route: 041
     Dates: start: 20070927, end: 20070928
  12. VENOGLOBULIN IH [Concomitant]
     Indication: FEBRILE NEUTROPENIA
     Route: 042
     Dates: start: 20070925, end: 20070928
  13. ISEPACIN [Concomitant]
     Indication: FEBRILE NEUTROPENIA
     Route: 042
     Dates: start: 20070927, end: 20070930
  14. LEUKOPROL [Concomitant]
     Active Substance: MIRIMOSTIM
     Indication: FEBRILE NEUTROPENIA
     Dosage: A DOSE UNIT OF 8 000 000, ONCE DAILY
     Route: 042
     Dates: start: 20070927, end: 20070929
  15. GLYCEOL                            /00744501/ [Concomitant]
     Active Substance: GLYCERIN
     Indication: CEREBRAL INFARCTION
  16. CERCINE [Concomitant]
     Active Substance: DIAZEPAM
     Indication: SEIZURE
     Route: 042
     Dates: start: 20070930, end: 20070930
  17. SOLU-CORTEF [Concomitant]
     Active Substance: HYDROCORTISONE SODIUM SUCCINATE
     Indication: FEBRILE NEUTROPENIA
     Route: 042
     Dates: start: 20070928, end: 20070928
  18. ALEVIATIN                          /00017401/ [Concomitant]
     Active Substance: PHENYTOIN SODIUM
     Indication: SEIZURE
     Route: 042
     Dates: start: 20070930
  19. LASIX [Concomitant]
     Active Substance: FUROSEMIDE
     Indication: PRODUCT USED FOR UNKNOWN INDICATION
     Route: 042
     Dates: start: 20070929, end: 20070930

REACTIONS (3)
  - Cerebral infarction [Not Recovered/Not Resolved]
  - Seizure [Not Recovered/Not Resolved]
  - Blood bilirubin increased [Not Recovered/Not Resolved]

NARRATIVE: CASE EVENT DATE: 20070928
